FAERS Safety Report 4273155-X (Version None)
Quarter: 2004Q1

REPORT INFORMATION
  Report Type: 
  Country: None (occurrence: None)
  Receive Date: 20040116
  Receipt Date: 20030722
  Transmission Date: 20041129
  Serious: Yes (Death, Hospitalization)
  Sender: FDA-Public Use
  Company Number: PHBS2003JP07730

PATIENT
  Age: 67 Year
  Sex: Male
  Weight: 60 kg

DRUGS (4)
  1. SOLU-MEDROL [Suspect]
     Indication: LYMPHANGIOSIS CARCINOMATOSA
     Dosage: 125 MG/DAY
     Route: 042
     Dates: start: 20030705, end: 20030707
  2. RINDERON [Suspect]
     Indication: LYMPHANGIOSIS CARCINOMATOSA
     Dosage: 2 MG, QD
     Route: 048
     Dates: start: 20030708, end: 20030709
  3. RINDERON [Suspect]
     Dosage: 1 MG, QD
     Route: 048
     Dates: start: 20030710, end: 20030715
  4. DIOVAN [Suspect]
     Indication: HYPERTENSION
     Dosage: 40 MG, QD
     Route: 048
     Dates: start: 20030620, end: 20030718

REACTIONS (11)
  - CONDITION AGGRAVATED [None]
  - HEPATITIS C [None]
  - JAUNDICE [None]
  - LIVER DISORDER [None]
  - LUNG NEOPLASM MALIGNANT [None]
  - LYMPHANGIOSIS CARCINOMATOSA [None]
  - METASTASES TO BILIARY TRACT [None]
  - METASTASES TO LIVER [None]
  - PLEURAL EFFUSION [None]
  - PLEURISY [None]
  - RESPIRATORY FAILURE [None]
